FAERS Safety Report 8837210 (Version 2)
Quarter: 2012Q4

REPORT INFORMATION
  Report Type: 
  Country: JP (occurrence: JP)
  Receive Date: 20121011
  Receipt Date: 20121213
  Transmission Date: 20130627
  Serious: Yes (Death, Other)
  Sender: FDA-Public Use
  Company Number: JP-ROCHE-1086177

PATIENT
  Age: 49 Year
  Sex: Male
  Weight: 76 kg

DRUGS (26)
  1. ALIMTA [Concomitant]
     Indication: LUNG ADENOCARCINOMA RECURRENT
     Route: 041
     Dates: start: 20120227, end: 20120227
  2. ALIMTA [Concomitant]
     Indication: LUNG ADENOCARCINOMA RECURRENT
     Route: 041
     Dates: start: 20120320, end: 20120320
  3. ALIMTA [Concomitant]
     Indication: LUNG ADENOCARCINOMA RECURRENT
     Route: 041
     Dates: start: 20120410, end: 20120410
  4. ALIMTA [Concomitant]
     Indication: LUNG ADENOCARCINOMA RECURRENT
     Route: 041
     Dates: start: 20120508, end: 20120508
  5. ALIMTA [Concomitant]
     Indication: LUNG ADENOCARCINOMA RECURRENT
     Route: 041
     Dates: start: 20120529, end: 20120529
  6. ALIMTA [Concomitant]
     Indication: LUNG ADENOCARCINOMA RECURRENT
     Route: 041
     Dates: start: 20120619, end: 20120619
  7. ACINON [Concomitant]
     Route: 048
  8. ALLOZYM [Concomitant]
     Route: 048
  9. VFEND [Concomitant]
     Indication: BRONCHOPULMONARY ASPERGILLOSIS
     Route: 048
     Dates: start: 20110922
  10. TEPRENONE [Concomitant]
     Route: 048
  11. MYSLEE [Concomitant]
     Route: 048
  12. LOXOPROFEN SODIUM [Concomitant]
     Dosage: Drug reported as : LOXOMARIN
     Route: 048
  13. PANVITAN [Concomitant]
     Route: 048
  14. SYMBICORT [Concomitant]
     Indication: BRONCHOPULMONARY ASPERGILLOSIS
     Route: 055
     Dates: start: 2011
  15. VALTREX [Concomitant]
     Route: 048
  16. FLAVITAN [Concomitant]
     Route: 048
  17. PYDOXAL [Concomitant]
     Route: 048
  18. CINAL [Concomitant]
     Route: 048
  19. MINOMYCIN [Concomitant]
     Route: 048
  20. HIRUDOID [Concomitant]
     Indication: DRY SKIN
     Dosage: Dosage is uncertain
     Route: 003
  21. AVASTIN [Suspect]
     Indication: LUNG ADENOCARCINOMA RECURRENT
     Route: 041
     Dates: start: 20120227, end: 20120227
  22. AVASTIN [Suspect]
     Indication: LUNG ADENOCARCINOMA RECURRENT
     Route: 041
     Dates: start: 20120320, end: 20120320
  23. AVASTIN [Suspect]
     Indication: LUNG ADENOCARCINOMA RECURRENT
     Route: 041
     Dates: start: 20120410, end: 20120410
  24. AVASTIN [Suspect]
     Indication: LUNG ADENOCARCINOMA RECURRENT
     Route: 041
     Dates: start: 20120508, end: 20120508
  25. AVASTIN [Suspect]
     Indication: LUNG ADENOCARCINOMA RECURRENT
     Dosage: Dosage is uncertain.
     Route: 041
     Dates: start: 20120529, end: 20120529
  26. AVASTIN [Suspect]
     Indication: LUNG ADENOCARCINOMA RECURRENT
     Dosage: Dosage is uncertain.
     Route: 041
     Dates: start: 20120619, end: 20120619

REACTIONS (5)
  - Pulmonary embolism [Not Recovered/Not Resolved]
  - Haemorrhoidal haemorrhage [Recovered/Resolved]
  - Hypertension [Recovered/Resolved]
  - Epistaxis [Recovered/Resolved]
  - Non-small cell lung cancer metastatic [Fatal]
